FAERS Safety Report 5605632-0 (Version None)
Quarter: 2008Q1

REPORT INFORMATION
  Report Type: 
  Country: None (occurrence: None)
  Receive Date: 20080129
  Receipt Date: 20080123
  Transmission Date: 20080703
  Serious: Yes (Other)
  Sender: FDA-Public Use
  Company Number: FR-BAYER-200710150BFR

PATIENT
  Age: 49 Year
  Sex: Male
  Weight: 63 kg

DRUGS (2)
  1. SORAFENIB [Suspect]
     Indication: CARCINOID TUMOUR OF THE SMALL BOWEL
     Route: 048
     Dates: start: 20060209
  2. DACARBAZINE [Suspect]
     Indication: CARCINOID TUMOUR OF THE SMALL BOWEL
     Route: 042
     Dates: start: 20060209, end: 20060504

REACTIONS (2)
  - MELANOCYTIC NAEVUS [None]
  - SUPERFICIAL SPREADING MELANOMA STAGE UNSPECIFIED [None]
